FAERS Safety Report 9737103 (Version 1)
Quarter: 2013Q4

REPORT INFORMATION
  Report Type: Spontaneous
  Country: US (occurrence: US)
  Receive Date: 20131206
  Receipt Date: 20131206
  Transmission Date: 20140711
  Serious: Yes (Other)
  Sender: FDA-Public Use
  Company Number: CHPA2013US017935

PATIENT
  Age: 76 Year
  Sex: Male

DRUGS (2)
  1. KERI ORIGINAL [Suspect]
     Indication: THERAPEUTIC SKIN CARE TOPICAL
     Dosage: UNK, UNK
     Route: 061
  2. KERI ORIGINAL [Suspect]
     Indication: OFF LABEL USE

REACTIONS (2)
  - Skin cancer [Recovered/Resolved]
  - Application site pain [Recovered/Resolved]
